FAERS Safety Report 6193614-2 (Version None)
Quarter: 2009Q2

REPORT INFORMATION
  Report Type: 
  Country: None (occurrence: None)
  Receive Date: 20090518
  Receipt Date: 20090507
  Transmission Date: 20091009
  Serious: Yes (Hospitalization)
  Sender: FDA-Public Use
  Company Number: DE-B.I. PHARMACEUTICALS,INC./RIDGEFIELD-2009-DE-03711DE

PATIENT
  Sex: Male
  Weight: 73 kg

DRUGS (7)
  1. NEVIRAPINE [Suspect]
     Indication: HIV INFECTION
     Dosage: 200MG
     Route: 048
     Dates: start: 20070111, end: 20070125
  2. NEVIRAPINE [Suspect]
     Dosage: 400MG
     Route: 048
     Dates: start: 20070126
  3. RASILEZ [Suspect]
     Indication: HYPERTENSION
     Dosage: 150MG
     Route: 048
     Dates: start: 20090427
  4. TRUVADA [Concomitant]
     Indication: HIV INFECTION
     Dosage: STRENGTH AND DAILY DOSE: 300 / 200 MG
     Route: 048
     Dates: start: 20070111
  5. RAMIPRIL [Concomitant]
     Indication: HYPERTENSION
     Dosage: 10MG
     Route: 048
     Dates: start: 20080306
  6. METOHEXAL SUCC [Concomitant]
     Indication: HYPERTENSION
     Dosage: 50MG
     Route: 048
     Dates: start: 20080409
  7. ALDARA [Concomitant]
     Indication: ANOGENITAL WARTS
     Dates: start: 20070701

REACTIONS (1)
  - CHOLELITHIASIS [None]
